FAERS Safety Report 11334760 (Version 1)
Quarter: 2015Q3

REPORT INFORMATION
  Report Type: Spontaneous
  Country: DE (occurrence: DE)
  Receive Date: 20150804
  Receipt Date: 20150804
  Transmission Date: 20151125
  Serious: Yes (Disabling)
  Sender: FDA-Public Use
  Company Number: DE-ACCORD-032799

PATIENT
  Age: 66 Year
  Sex: Male
  Weight: 74 kg

DRUGS (3)
  1. FOLINIC ACID [Concomitant]
     Active Substance: LEUCOVORIN
     Dosage: PREVIOUSLY RECEIVED ON 08-MAY-2015
  2. IRINOTECAN [Concomitant]
     Active Substance: IRINOTECAN
     Dosage: PREVIOUSLY RECEIVED ON 08-MAY-2015
  3. FLUOROURACIL. [Suspect]
     Active Substance: FLUOROURACIL
     Indication: COLORECTAL CANCER METASTATIC
     Dosage: PREVIOUSLY RECEIVED ON 08-MAY-2015
     Route: 041
     Dates: start: 20150526, end: 20150616

REACTIONS (2)
  - Blindness [Not Recovered/Not Resolved]
  - Optic neuropathy [Not Recovered/Not Resolved]

NARRATIVE: CASE EVENT DATE: 20150625
